FAERS Safety Report 25473338 (Version 3)
Quarter: 2025Q3

REPORT INFORMATION
  Report Type: Spontaneous
  Country: PK (occurrence: PK)
  Receive Date: 20250624
  Receipt Date: 20250821
  Transmission Date: 20251020
  Serious: Yes (Other)
  Sender: PFIZER
  Company Number: PK-PFIZER INC-PV202400077802

PATIENT
  Age: 31 Year
  Sex: Male
  Weight: 63 kg

DRUGS (3)
  1. IXIFI [Suspect]
     Active Substance: INFLIXIMAB-QBTX
     Indication: Rheumatoid arthritis
     Route: 042
  2. IXIFI [Suspect]
     Active Substance: INFLIXIMAB-QBTX
     Indication: Ankylosing spondylitis
     Route: 042
     Dates: start: 202406
  3. IXIFI [Suspect]
     Active Substance: INFLIXIMAB-QBTX
     Route: 042
     Dates: start: 202406

REACTIONS (3)
  - Behcet^s syndrome [Unknown]
  - Trigeminal neuralgia [Unknown]
  - Off label use [Unknown]
